FAERS Safety Report 26129929 (Version 1)
Quarter: 2025Q4

REPORT INFORMATION
  Report Type: Spontaneous
  Country: GB (occurrence: GB)
  Receive Date: 20251208
  Receipt Date: 20251208
  Transmission Date: 20260118
  Serious: Yes (Other)
  Sender: ALEXION PHARMACEUTICALS
  Company Number: None

PATIENT
  Age: 75 Year
  Sex: Male
  Weight: 125 kg

DRUGS (7)
  1. DAPAGLIFLOZIN [Suspect]
     Active Substance: DAPAGLIFLOZIN
     Indication: Type 2 diabetes mellitus
     Dosage: ONE TO BE TAKEN DAILY
     Route: 065
     Dates: start: 20250506
  2. LINAGLIPTIN [Concomitant]
     Active Substance: LINAGLIPTIN
     Indication: Type 2 diabetes mellitus
     Dosage: ONE TO BE TAKEN EACH DAY
     Route: 065
     Dates: start: 20250312
  3. SPIKEVAX [Concomitant]
     Active Substance: CX-046684
     Indication: COVID-19 immunisation
  4. SPIKEVAX [Concomitant]
     Active Substance: CX-046684
  5. GLICLAZIDE [Concomitant]
     Active Substance: GLICLAZIDE
     Indication: Type 2 diabetes mellitus
     Dosage: TAKE ONE TABLET ONCE A DAY WITH BREAKFAST
     Route: 065
  6. FLUCLOXACILLIN [Concomitant]
     Active Substance: FLUCLOXACILLIN
     Route: 065
  7. PIROXICAM [Concomitant]
     Active Substance: PIROXICAM
     Route: 065

REACTIONS (3)
  - Arthralgia [Recovering/Resolving]
  - Joint swelling [Recovering/Resolving]
  - Inflammation [Unknown]

NARRATIVE: CASE EVENT DATE: 20250517
